FAERS Safety Report 10071062 (Version 1)
Quarter: 2014Q2

REPORT INFORMATION
  Report Type: Spontaneous
  Country: US (occurrence: US)
  Receive Date: 20140410
  Receipt Date: 20140410
  Transmission Date: 20141212
  Serious: Yes (Hospitalization, Other)
  Sender: FDA-Public Use
  Company Number: US-TEVA-474697USA

PATIENT
  Sex: 0

DRUGS (1)
  1. CEFTRIAXONE [Suspect]
     Dosage: 50 MG/KG ONCE DAILY
     Route: 050

REACTIONS (1)
  - Cholelithiasis [Recovered/Resolved]
